FAERS Safety Report 4996545-6 (Version None)
Quarter: 2006Q2

REPORT INFORMATION
  Report Type: 
  Country: None (occurrence: None)
  Receive Date: 20060509
  Receipt Date: 20060427
  Transmission Date: 20061013
  Serious: Yes (Hospitalization)
  Sender: FDA-Public Use
  Company Number: US-AMGEN-US177803

PATIENT
  Sex: Female

DRUGS (3)
  1. NEULASTA [Suspect]
     Indication: CHEMOTHERAPY
     Dates: start: 20060126
  2. TAXOTERE [Concomitant]
     Route: 065
     Dates: start: 20060120
  3. HERCEPTIN [Concomitant]
     Route: 065
     Dates: start: 20060101

REACTIONS (1)
  - LUNG INFILTRATION [None]
